FAERS Safety Report 23407701 (Version 4)
Quarter: 2024Q2

REPORT INFORMATION
  Report Type: Spontaneous
  Country: KZ (occurrence: KZ)
  Receive Date: 20240117
  Receipt Date: 20240425
  Transmission Date: 20240716
  Serious: Yes (Other)
  Sender: FDA-Public Use
  Company Number: KZ-Merck Healthcare KGaA-2024001375

PATIENT
  Age: 36 Year
  Sex: Female
  Weight: 50 kg

DRUGS (2)
  1. MAVENCLAD [Suspect]
     Active Substance: CLADRIBINE
     Indication: Multiple sclerosis
     Dosage: YEAR ONE WEEK ONE THERAPY
     Route: 048
     Dates: start: 20231213, end: 20231217
  2. MAVENCLAD [Suspect]
     Active Substance: CLADRIBINE

REACTIONS (4)
  - Angioedema [Not Recovered/Not Resolved]
  - Rhinitis allergic [Recovering/Resolving]
  - Lip ulceration [Recovering/Resolving]
  - Dysgeusia [Recovering/Resolving]

NARRATIVE: CASE EVENT DATE: 20231201
